FAERS Safety Report 22355133 (Version 1)
Quarter: 2023Q2

REPORT INFORMATION
  Report Type: Spontaneous
  Country: US (occurrence: US)
  Receive Date: 20230523
  Receipt Date: 20230523
  Transmission Date: 20230721
  Serious: No
  Sender: FDA-Public Use
  Company Number: US-PFIZER INC-202300196119

PATIENT
  Age: 57 Year
  Sex: Female
  Weight: 72.57 kg

DRUGS (2)
  1. METHOTREXATE SODIUM [Suspect]
     Active Substance: METHOTREXATE SODIUM
     Indication: Rheumatoid arthritis
     Dosage: 5 MG
  2. METHOTREXATE SODIUM [Suspect]
     Active Substance: METHOTREXATE SODIUM
     Dosage: 4 MG
     Dates: start: 2023

REACTIONS (3)
  - Nodule [Unknown]
  - Swelling [Not Recovered/Not Resolved]
  - Ligament sprain [Unknown]
